FAERS Safety Report 6754841-6 (Version None)
Quarter: 2010Q2

REPORT INFORMATION
  Report Type: 
  Country: None (occurrence: None)
  Receive Date: 20100603
  Receipt Date: 20100601
  Transmission Date: 20101027
  Serious: Yes (Hospitalization)
  Sender: FDA-Public Use
  Company Number: US-GILEAD-2010-0029542

PATIENT
  Sex: Female

DRUGS (11)
  1. LETAIRIS [Suspect]
     Indication: PULMONARY ARTERIAL HYPERTENSION
     Route: 048
     Dates: start: 20100209
  2. RECLAST [Concomitant]
  3. PLAVIX [Concomitant]
  4. LASIX [Concomitant]
  5. TIAZAC [Concomitant]
  6. SIMVASTATIN [Concomitant]
  7. NEXIUM [Concomitant]
  8. LEVOTHYROXINE SODIUM [Concomitant]
  9. VITAMINS TO MIS GO [Concomitant]
  10. CALCIUM /D [Concomitant]
  11. POT CL MICRO [Concomitant]

REACTIONS (1)
  - SYNCOPE [None]
